FAERS Safety Report 9470343 (Version 1)
Quarter: 2013Q3

REPORT INFORMATION
  Report Type: Spontaneous
  Country: US (occurrence: US)
  Receive Date: 20130822
  Receipt Date: 20130822
  Transmission Date: 20140515
  Serious: No
  Sender: FDA-Public Use
  Company Number: US-SANOFI-AVENTIS-2012SA090242

PATIENT
  Age: 75 Year
  Sex: Female

DRUGS (2)
  1. MULTAQ [Suspect]
     Indication: ATRIAL FIBRILLATION
     Route: 048
     Dates: start: 2012
  2. ASPIRIN [Concomitant]

REACTIONS (5)
  - Tremor [Unknown]
  - Constipation [Unknown]
  - Asthenia [Unknown]
  - Gastric disorder [Unknown]
  - Dyspepsia [Unknown]
